FAERS Safety Report 8844535 (Version 1)
Quarter: 2012Q4

REPORT INFORMATION
  Report Type: Spontaneous
  Country: JP (occurrence: None)
  Receive Date: 20121012
  Receipt Date: 20121012
  Transmission Date: 20130627
  Serious: Yes (Hospitalization)
  Sender: FDA-Public Use
  Company Number: DSA_53169_2012

PATIENT
  Age: 62 Year
  Sex: Female

DRUGS (5)
  1. FLUOROURACIL [Suspect]
     Indication: RECTAL CANCER
     Dosage: 1x/week intravenous (not otherwise specified)
     Route: 042
     Dates: start: 20030311, end: 20030416
  2. FLUOROURACIL [Suspect]
     Indication: RECTAL CANCER
     Dosage: (DF)
     Dates: start: 2003, end: 2003
  3. FLUOROURACIL [Suspect]
     Indication: RECTAL CANCER
     Route: 040
     Dates: start: 20030604
  4. CALCIUM LEVOFOLINATE [Suspect]
     Indication: RECTAL CANCER
     Dosage: 325 mg 1x/week
     Route: 042
     Dates: start: 20030305, end: 20030416
  5. CALCIUM LEVOFOLINATE [Suspect]
     Indication: RECTAL CANCER
     Dosage: intravenous (not otherwise specified)
     Route: 042
     Dates: start: 20030604

REACTIONS (4)
  - Stress cardiomyopathy [None]
  - Cardiac failure acute [None]
  - Pulmonary congestion [None]
  - Myocardial ischaemia [None]
